FAERS Safety Report 4358380-1 (Version None)
Quarter: 2004Q2

REPORT INFORMATION
  Report Type: 
  Country: None (occurrence: None)
  Receive Date: 20040512
  Receipt Date: 20040512
  Transmission Date: 20050107
  Serious: Yes (Death)
  Sender: FDA-Public Use
  Company Number: None

PATIENT
  Age: 53 Year
  Sex: Female
  Weight: 112.3 kg

DRUGS (4)
  1. FLUDARABINE PHOSPHATE [Suspect]
     Indication: ACUTE MYELOID LEUKAEMIA
     Dosage: 27 MG QD X 5 IV
     Route: 042
     Dates: start: 20040326, end: 20040330
  2. CARBOPLATIN [Suspect]
     Indication: ACUTE MYELOID LEUKAEMIA
     Dosage: 185 MG QD X 5 IV
     Route: 042
     Dates: start: 20040326, end: 20040331
  3. TOPOTECAN [Suspect]
     Indication: ACUTE MYELOID LEUKAEMIA
     Dosage: 31.6 MG QD X 3D IV
     Route: 042
     Dates: start: 20040331, end: 20040403
  4. THALIDOMIDE [Suspect]
     Indication: ACUTE MYELOID LEUKAEMIA
     Dosage: 100MG/200MG (D 1-7) PO
     Route: 048
     Dates: start: 20040329, end: 20040414

REACTIONS (12)
  - BIOPSY BONE MARROW ABNORMAL [None]
  - BONE MARROW DEPRESSION [None]
  - DRUG TOXICITY [None]
  - DYSARTHRIA [None]
  - ECHOCARDIOGRAM ABNORMAL [None]
  - ENTEROCOCCAL INFECTION [None]
  - HYPOXIA [None]
  - LUNG INFILTRATION [None]
  - NERVOUS SYSTEM DISORDER [None]
  - PULMONARY HAEMORRHAGE [None]
  - REFLEXES ABNORMAL [None]
  - RENAL FAILURE ACUTE [None]
